FAERS Safety Report 23699566 (Version 2)
Quarter: 2024Q2

REPORT INFORMATION
  Report Type: Report from Study
  Country: US (occurrence: US)
  Receive Date: 20240402
  Receipt Date: 20240513
  Transmission Date: 20240716
  Serious: Yes (Hospitalization)
  Sender: FDA-Public Use
  Company Number: US-TAKEDA-2024TUS030397

PATIENT
  Age: 7 Year
  Sex: Male

DRUGS (12)
  1. TEDUGLUTIDE [Suspect]
     Active Substance: TEDUGLUTIDE
     Indication: Short-bowel syndrome
     Dosage: 0.72 MILLIGRAM, QD
     Route: 042
     Dates: start: 20200131, end: 20230623
  2. TEDUGLUTIDE [Suspect]
     Active Substance: TEDUGLUTIDE
     Indication: Short-bowel syndrome
     Dosage: 0.72 MILLIGRAM, QD
     Route: 042
     Dates: start: 20200131, end: 20230623
  3. TEDUGLUTIDE [Suspect]
     Active Substance: TEDUGLUTIDE
     Indication: Short-bowel syndrome
     Dosage: 0.72 MILLIGRAM, QD
     Route: 042
     Dates: start: 20200131, end: 20230623
  4. TEDUGLUTIDE [Suspect]
     Active Substance: TEDUGLUTIDE
     Indication: Short-bowel syndrome
     Dosage: 0.72 MILLIGRAM, QD
     Route: 042
     Dates: start: 20200131, end: 20230623
  5. TEDUGLUTIDE [Suspect]
     Active Substance: TEDUGLUTIDE
     Dosage: 0.72 MILLIGRAM, QD
     Route: 042
     Dates: start: 20230818
  6. TEDUGLUTIDE [Suspect]
     Active Substance: TEDUGLUTIDE
     Dosage: 0.72 MILLIGRAM, QD
     Route: 042
     Dates: start: 20230818
  7. TEDUGLUTIDE [Suspect]
     Active Substance: TEDUGLUTIDE
     Dosage: 0.72 MILLIGRAM, QD
     Route: 042
     Dates: start: 20230818
  8. TEDUGLUTIDE [Suspect]
     Active Substance: TEDUGLUTIDE
     Dosage: 0.72 MILLIGRAM, QD
     Route: 042
     Dates: start: 20230818
  9. METRONIDAZOLE [Concomitant]
     Active Substance: METRONIDAZOLE
     Indication: Gastrointestinal bacterial overgrowth
     Dosage: 2.5 MILLILITER, TID
     Route: 048
     Dates: start: 20230627, end: 20230706
  10. METRONIDAZOLE [Concomitant]
     Active Substance: METRONIDAZOLE
     Dosage: 2.5 MILLILITER, TID
     Route: 048
     Dates: start: 20231013, end: 20231023
  11. AZITHROMYCIN [Concomitant]
     Active Substance: AZITHROMYCIN
     Indication: Respiratory syncytial virus infection
     Dosage: 180 MILLIGRAM, SINGLE
     Route: 050
     Dates: start: 20231023, end: 20231023
  12. AZITHROMYCIN [Concomitant]
     Active Substance: AZITHROMYCIN
     Dosage: 93.5 MILLIGRAM, QD
     Route: 048
     Dates: start: 20231024, end: 20231027

REACTIONS (1)
  - Rhinovirus infection [Recovered/Resolved]

NARRATIVE: CASE EVENT DATE: 20240108
